FAERS Safety Report 19492652 (Version 1)
Quarter: 2021Q3

REPORT INFORMATION
  Report Type: Spontaneous
  Country: GB (occurrence: GB)
  Receive Date: 20210705
  Receipt Date: 20210705
  Transmission Date: 20211014
  Serious: Yes (Other)
  Sender: FDA-Public Use
  Company Number: GB-ACCORD-230071

PATIENT
  Age: 89 Year
  Sex: Female
  Weight: 63 kg

DRUGS (15)
  1. ATORVASTATIN [Concomitant]
     Active Substance: ATORVASTATIN
     Dosage: TAKE AT NIGHT
     Dates: start: 20201208
  2. ACIDEX [Concomitant]
     Dosage: SPOONSFUL AFTER MEALS AND AT BED?T...
     Dates: start: 20201208
  3. SYSTANE (HYPROMELLOSE 2910 (4000 MPA.S)) [Concomitant]
     Active Substance: HYPROMELLOSE 2910 (4000 MPA.S)
     Dosage: 6 TIMES A DAY IN BOTH EYES, EYE DROPS
     Dates: start: 20201208
  4. ALLOPURINOL. [Concomitant]
     Active Substance: ALLOPURINOL
     Dosage: DAILY
     Dates: start: 20201208
  5. ARTELAC [Concomitant]
     Dosage: AS NEEDED
     Dates: start: 20201208
  6. ASPIRIN. [Concomitant]
     Active Substance: ASPIRIN
     Dosage: ONCE DAILY
     Dates: start: 20201208
  7. CALCITRIOL. [Concomitant]
     Active Substance: CALCITRIOL
     Dates: start: 20201208
  8. RANITIDINE. [Concomitant]
     Active Substance: RANITIDINE
     Dosage: AT NIGHT TO REDUCE STOMACH ACID
     Dates: start: 20201208
  9. COCODAMOL [Concomitant]
     Active Substance: ACETAMINOPHEN\CODEINE PHOSPHATE
     Dosage: TAKE ONE OR TWO UP TO FOUR TIMES A DAY ...
     Dates: start: 20210427
  10. FUROSEMIDE. [Concomitant]
     Active Substance: FUROSEMIDE
     Dosage: ALTERNATE DAYS
     Dates: start: 20201208
  11. LAXIDO [Concomitant]
     Active Substance: POLYETHYLENE GLYCOL 3350\POTASSIUM CHLORIDE\SODIUM BICARBONATE\SODIUM CHLORIDE
     Dosage: UPTO THREE TIMES DAILY
     Dates: start: 20210504, end: 20210603
  12. SERTRALINE [Suspect]
     Active Substance: SERTRALINE HYDROCHLORIDE
     Indication: PRODUCT USED FOR UNKNOWN INDICATION
     Dates: start: 20210621
  13. CALCI?D [Concomitant]
     Active Substance: CALCIUM CARBONATE\CHOLECALCIFEROL
     Dates: start: 20201208
  14. SERTRALINE [Concomitant]
     Active Substance: SERTRALINE HYDROCHLORIDE
     Dosage: FOR MOOD
     Dates: start: 20210603
  15. TRESIBA [Concomitant]
     Active Substance: INSULIN DEGLUDEC
     Dosage: USE
     Dates: start: 20201208

REACTIONS (1)
  - Diarrhoea [Recovering/Resolving]

NARRATIVE: CASE EVENT DATE: 20210621
